FAERS Safety Report 8308492-2 (Version None)
Quarter: 2012Q2

REPORT INFORMATION
  Report Type: 
  Country: None (occurrence: None)
  Receive Date: 20120424
  Receipt Date: 20120416
  Transmission Date: 20120825
  Serious: Yes (Hospitalization)
  Sender: FDA-Public Use
  Company Number: DE-ROCHE-1061460

PATIENT
  Age: 67 Year
  Sex: Male
  Weight: 45 kg

DRUGS (4)
  1. OXANDRIN [Concomitant]
  2. CYCLOPHOSPHAMIDE [Concomitant]
  3. MABTHERA [Suspect]
     Indication: B-CELL LYMPHOMA
  4. VINCRISTINE [Concomitant]

REACTIONS (5)
  - OSTEOPOROSIS [None]
  - SPINAL FRACTURE [None]
  - PNEUMONIA [None]
  - HEPATIC FAILURE [None]
  - RENAL FAILURE [None]
